FAERS Safety Report 20387411 (Version 1)
Quarter: 2022Q1

REPORT INFORMATION
  Report Type: Spontaneous
  Country: US (occurrence: US)
  Receive Date: 20220127
  Receipt Date: 20220127
  Transmission Date: 20220423
  Serious: No
  Sender: FDA-Public Use
  Company Number: US-ALLERGAN-2105214US

PATIENT

DRUGS (1)
  1. BOTOX [Suspect]
     Active Substance: ONABOTULINUMTOXINA
     Indication: Skin wrinkling
     Dosage: UNK UNK, SINGLE

REACTIONS (6)
  - Fear of disease [Unknown]
  - Skin wrinkling [Unknown]
  - General physical condition abnormal [Unknown]
  - Facial discomfort [Unknown]
  - Facial paresis [Unknown]
  - Facial paralysis [Unknown]
